FAERS Safety Report 8063342-7 (Version None)
Quarter: 2012Q1

REPORT INFORMATION
  Report Type: 
  Country: None (occurrence: None)
  Receive Date: 20120123
  Receipt Date: 20120120
  Transmission Date: 20120608
  Serious: Yes (Hospitalization, Other)
  Sender: FDA-Public Use
  Company Number: US-ROCHE-527488

PATIENT
  Sex: Male
  Weight: 77.1 kg

DRUGS (4)
  1. ACCUTANE [Suspect]
     Indication: ACNE
     Route: 065
     Dates: start: 19961029, end: 19970128
  2. ACCUTANE [Suspect]
     Route: 065
     Dates: start: 20010924, end: 20011224
  3. ACCUTANE [Suspect]
     Route: 065
     Dates: start: 19970827, end: 19980115
  4. ACCUTANE [Suspect]
     Route: 065
     Dates: start: 19980604, end: 19980709

REACTIONS (10)
  - DEPRESSION [None]
  - COLITIS ULCERATIVE [None]
  - PROCTITIS [None]
  - SINUSITIS [None]
  - HEADACHE [None]
  - ANAEMIA [None]
  - ATTENTION DEFICIT/HYPERACTIVITY DISORDER [None]
  - COLITIS [None]
  - TIBIA FRACTURE [None]
  - INFLAMMATORY BOWEL DISEASE [None]
